FAERS Safety Report 8313512-5 (Version None)
Quarter: 2012Q2

REPORT INFORMATION
  Report Type: 
  Country: None (occurrence: None)
  Receive Date: 20120426
  Receipt Date: 20120417
  Transmission Date: 20120825
  Serious: Yes (Other)
  Sender: FDA-Public Use
  Company Number: FR-JNJFOC-20120408498

PATIENT
  Sex: Female

DRUGS (6)
  1. XARELTO [Suspect]
     Indication: KNEE ARTHROPLASTY
     Route: 048
     Dates: start: 20120403, end: 20120405
  2. KETOPROFEN [Concomitant]
     Route: 048
     Dates: start: 20120402
  3. XARELTO [Suspect]
     Indication: THROMBOSIS PROPHYLAXIS
     Route: 048
     Dates: start: 20120403, end: 20120405
  4. CEFAZOLIN [Concomitant]
     Route: 042
  5. RABEPRAZOLE SODIUM [Concomitant]
     Route: 048
  6. ACETAMINOPHEN [Concomitant]
     Route: 048
     Dates: start: 20120402

REACTIONS (1)
  - DEEP VEIN THROMBOSIS [None]
